FAERS Safety Report 5372137-4 (Version None)
Quarter: 2007Q2

REPORT INFORMATION
  Report Type: 
  Country: None (occurrence: None)
  Receive Date: 20070615
  Receipt Date: 20070215
  Transmission Date: 20071010
  Serious: Yes (Other)
  Sender: FDA-Public Use
  Company Number: 200619977US

PATIENT
  Age: 39 Year
  Sex: Male

DRUGS (3)
  1. LANTUS [Suspect]
     Indication: DIABETES MELLITUS
     Dosage: 10 U
     Dates: start: 20061101
  2. LANTUS [Suspect]
     Indication: DIABETES MELLITUS
     Dosage: 40 U
     Dates: start: 20061206
  3. LANTUS [Suspect]
     Indication: DIABETES MELLITUS
     Dates: start: 20061101

REACTIONS (4)
  - BLOOD GLUCOSE INCREASED [None]
  - DRUG INEFFECTIVE [None]
  - HYPERGLYCAEMIA [None]
  - URINE KETONE BODY PRESENT [None]
